FAERS Safety Report 10084996 (Version 2)
Quarter: 2014Q2

REPORT INFORMATION
  Report Type: Report from Study
  Country: US (occurrence: US)
  Receive Date: 20140417
  Receipt Date: 20140417
  Transmission Date: 20141212
  Serious: Yes (Hospitalization)
  Sender: FDA-Public Use
  Company Number: US-BAYER-2014-027468

PATIENT
  Age: 64 Year
  Sex: Female

DRUGS (2)
  1. STIVARGA [Suspect]
     Indication: COLON CANCER
     Dosage: 160 MG, QD
     Route: 048
     Dates: start: 20140214, end: 2014
  2. STIVARGA [Suspect]
     Indication: COLON CANCER
     Dosage: 80 MG, QD
     Route: 048
     Dates: start: 2014

REACTIONS (18)
  - Asthenia [None]
  - Nausea [None]
  - Vomiting [None]
  - Pain in extremity [None]
  - Headache [None]
  - Stomatitis [None]
  - Rash generalised [Recovered/Resolved]
  - Blister [None]
  - Mouth ulceration [Recovered/Resolved]
  - Neutropenia [None]
  - Dysphonia [None]
  - Pain in extremity [None]
  - Musculoskeletal stiffness [None]
  - Rash [None]
  - Blood count abnormal [Not Recovered/Not Resolved]
  - Renal impairment [Not Recovered/Not Resolved]
  - Palmar-plantar erythrodysaesthesia syndrome [Recovered/Resolved]
  - Skin exfoliation [Recovered/Resolved]
